FAERS Safety Report 8444325-1 (Version None)
Quarter: 2012Q2

REPORT INFORMATION
  Report Type: 
  Country: None (occurrence: None)
  Receive Date: 20120618
  Receipt Date: 20120604
  Transmission Date: 20120825
  Serious: Yes (Other)
  Sender: FDA-Public Use
  Company Number: BE-CELGENEUS-013-C5013-11090349

PATIENT
  Sex: Female
  Weight: 40.2 kg

DRUGS (3)
  1. LORAZEPAM [Concomitant]
     Dosage: 1 MILLIGRAM
     Route: 065
  2. LENALIDOMIDE [Suspect]
     Dosage: 5 MILLIGRAM
     Route: 048
     Dates: start: 20060731, end: 20090727
  3. LENALIDOMIDE [Suspect]
     Route: 048
     Dates: start: 20060731, end: 20061119

REACTIONS (2)
  - OROPHARYNGEAL CANCER STAGE III [None]
  - RECTAL CANCER STAGE II [None]
